FAERS Safety Report 11996390 (Version 1)
Quarter: 2016Q1

REPORT INFORMATION
  Report Type: Spontaneous
  Country: US (occurrence: US)
  Receive Date: 20160203
  Receipt Date: 20160203
  Transmission Date: 20160526
  Serious: No
  Sender: FDA-Public Use
  Company Number: US-GALDERMA-US15001584

PATIENT
  Age: 15 Year
  Sex: Male

DRUGS (4)
  1. CVS BRAND ADVANCED THERAPY LOTION [Concomitant]
     Route: 061
  2. AXE APOLLO SHOWER GEL [Concomitant]
     Route: 061
  3. EPIDUO [Suspect]
     Active Substance: ADAPALENE\BENZOYL PEROXIDE
     Indication: ACNE
     Route: 061
     Dates: start: 20150218
  4. MELATONIN [Concomitant]
     Active Substance: MELATONIN

REACTIONS (2)
  - Skin exfoliation [Unknown]
  - Dry skin [Unknown]

NARRATIVE: CASE EVENT DATE: 20150315
